FAERS Safety Report 22299004 (Version 3)
Quarter: 2023Q2

REPORT INFORMATION
  Report Type: Report from Study
  Country: US (occurrence: US)
  Receive Date: 20230509
  Receipt Date: 20230623
  Transmission Date: 20230721
  Serious: Yes (Other)
  Sender: FDA-Public Use
  Company Number: US-002147023-NVSC2023US102841

PATIENT
  Sex: Female

DRUGS (1)
  1. KESIMPTA [Suspect]
     Active Substance: OFATUMUMAB
     Indication: Multiple sclerosis
     Dosage: 20 MG, QMO
     Route: 058

REACTIONS (8)
  - Burns third degree [Recovering/Resolving]
  - Breast enlargement [Unknown]
  - Pyrexia [Unknown]
  - Irritability [Unknown]
  - Arthropod bite [Unknown]
  - Peripheral swelling [Unknown]
  - Brain fog [Unknown]
  - Maternal exposure during pregnancy [Unknown]
